FAERS Safety Report 5013040-9 (Version None)
Quarter: 2006Q2

REPORT INFORMATION
  Report Type: 
  Country: None (occurrence: None)
  Receive Date: 20060530
  Receipt Date: 20060207
  Transmission Date: 20061013
  Serious: No
  Sender: FDA-Public Use
  Company Number: US-GLAXOSMITHKLINE-A0592680A

PATIENT
  Age: 23 Year
  Sex: Female

DRUGS (3)
  1. WELLBUTRIN XL [Suspect]
     Indication: DEPRESSION
     Dosage: 150MG UNKNOWN
     Route: 048
  2. ZELNORM [Concomitant]
  3. ORTHO TRI-CYCLEN [Concomitant]

REACTIONS (1)
  - PAIN IN EXTREMITY [None]
